FAERS Safety Report 4477384-1 (Version None)
Quarter: 2004Q3

REPORT INFORMATION
  Report Type: 
  Country: None (occurrence: None)
  Receive Date: 20040923
  Receipt Date: 20040723
  Transmission Date: 20050211
  Serious: No
  Sender: FDA-Public Use
  Company Number: USA040773545

PATIENT
  Age: 79 Year
  Sex: Female
  Weight: 70 kg

DRUGS (6)
  1. FORTEO [Suspect]
     Indication: OSTEOPOROSIS
     Dates: start: 20040715
  2. PREDNISONE [Concomitant]
  3. PAXIL [Concomitant]
  4. ZETIA [Concomitant]
  5. ALTACE [Concomitant]
  6. THYROID TAB [Concomitant]

REACTIONS (9)
  - ASTHENIA [None]
  - BALANCE DISORDER [None]
  - DIZZINESS [None]
  - FATIGUE [None]
  - FEELING ABNORMAL [None]
  - MUSCLE CRAMP [None]
  - PAIN IN EXTREMITY [None]
  - PARAESTHESIA ORAL [None]
  - TREMOR [None]
